APPROVED DRUG PRODUCT: SODIUM FLUORIDE F-18
Active Ingredient: SODIUM FLUORIDE F-18
Strength: 10-200mCi/ML
Dosage Form/Route: INJECTABLE;INTRAVENOUS
Application: A203936 | Product #001 | TE Code: AP
Applicant: KREITCHMAN PET CENTER
Approved: May 19, 2016 | RLD: No | RS: No | Type: RX